FAERS Safety Report 14156490 (Version 2)
Quarter: 2017Q4

REPORT INFORMATION
  Report Type: Spontaneous
  Country: AU (occurrence: AU)
  Receive Date: 20171103
  Receipt Date: 20171221
  Transmission Date: 20180321
  Serious: Yes (Hospitalization, Other)
  Sender: FDA-Public Use
  Company Number: AU-AMGEN-AUSSP2017132000

PATIENT
  Age: 76 Year
  Sex: Female
  Weight: 89 kg

DRUGS (4)
  1. KYPROLIS [Suspect]
     Active Substance: CARFILZOMIB
     Indication: PLASMA CELL MYELOMA
     Dosage: 20 MG/M2 (38 MG), UNK
     Route: 042
     Dates: start: 20170823, end: 2017
  2. DEXAMETHASONE. [Concomitant]
     Active Substance: DEXAMETHASONE
     Indication: PLASMA CELL MYELOMA
     Dosage: 20 MG, UNK, (60 PERCENT TO CARFILZOMIB)
     Dates: start: 201708
  3. ASPIRIN. [Concomitant]
     Active Substance: ASPIRIN
     Dosage: 100 MG, QD
  4. KYPROLIS [Suspect]
     Active Substance: CARFILZOMIB
     Dosage: 56 MG/M2, (40 MG, 37 % DOSE REDUCTION) UNK
     Route: 042
     Dates: start: 2017

REACTIONS (10)
  - Pericardial effusion [Unknown]
  - Mitral valve incompetence [Unknown]
  - Pleural effusion [Unknown]
  - Dilatation atrial [Unknown]
  - Aortic valve incompetence [Unknown]
  - Tricuspid valve incompetence [Unknown]
  - Aortic valve sclerosis [Unknown]
  - Chest pain [Recovered/Resolved]
  - Dyspnoea [Recovered/Resolved]
  - Chest discomfort [Recovered/Resolved]

NARRATIVE: CASE EVENT DATE: 20170823
